FAERS Safety Report 8716766 (Version 3)
Quarter: 2013Q4

REPORT INFORMATION
  Report Type: Spontaneous
  Country: US (occurrence: US)
  Receive Date: 20120810
  Receipt Date: 20131031
  Transmission Date: 20140711
  Serious: No
  Sender: FDA-Public Use
  Company Number: US-009507513-2012SP032501

PATIENT
  Age: 34 Year
  Sex: Male

DRUGS (3)
  1. PEGINTRON [Suspect]
     Indication: HEPATITIS C
     Dosage: 150 ?G, QW
     Route: 059
     Dates: start: 201205
  2. ATENOLOL [Concomitant]
  3. TYLENOL [Concomitant]

REACTIONS (4)
  - Nasopharyngitis [Recovered/Resolved]
  - Nasal congestion [Recovered/Resolved]
  - Vision blurred [Recovered/Resolved]
  - Drug dose omission [Unknown]
